FAERS Safety Report 12187825 (Version 2)
Quarter: 2016Q2

REPORT INFORMATION
  Report Type: Spontaneous
  Country: JP (occurrence: JP)
  Receive Date: 20160317
  Receipt Date: 20160524
  Transmission Date: 20160815
  Serious: Yes (Hospitalization, Other)
  Sender: FDA-Public Use
  Company Number: JP-PFIZER INC-2016149326

PATIENT

DRUGS (1)
  1. XALKORI [Suspect]
     Active Substance: CRIZOTINIB
     Dosage: 500 MG, DAILY
     Route: 048

REACTIONS (2)
  - C-reactive protein increased [Recovering/Resolving]
  - Bone marrow necrosis [Unknown]

NARRATIVE: CASE EVENT DATE: 20160308
